FAERS Safety Report 11561326 (Version 3)
Quarter: 2015Q4

REPORT INFORMATION
  Report Type: Report from Study
  Country: PL (occurrence: PL)
  Receive Date: 20150928
  Receipt Date: 20151120
  Transmission Date: 20160304
  Serious: Yes (Hospitalization)
  Sender: FDA-Public Use
  Company Number: PL-BRISTOL-MYERS SQUIBB COMPANY-BMS-2015-062668

PATIENT
  Age: 74 Year
  Sex: Female
  Weight: 73 kg

DRUGS (10)
  1. KARBIS [Concomitant]
     Active Substance: CANDESARTAN CILEXETIL
     Indication: HYPERTENSION
     Dosage: UNK
     Route: 065
  2. GLUCOPHAGE XR [Suspect]
     Active Substance: METFORMIN HYDROCHLORIDE
     Indication: DIABETES MELLITUS
     Dosage: 500 MG, QD
     Route: 048
     Dates: start: 20110101
  3. CARBOPLATIN. [Suspect]
     Active Substance: CARBOPLATIN
     Indication: BREAST CANCER
     Dosage: 460 MG, Q3WK
     Route: 042
     Dates: start: 20150518
  4. DOCETAXEL. [Concomitant]
     Active Substance: DOCETAXEL
     Indication: BREAST CANCER
     Dosage: 106 MG, Q3WK
     Route: 042
     Dates: start: 20150518
  5. ANAFRANIL [Concomitant]
     Active Substance: CLOMIPRAMINE HYDROCHLORIDE
     Indication: DEPRESSION
     Dosage: UNK
     Route: 065
     Dates: start: 19850101
  6. SORTIS [Concomitant]
     Active Substance: ATORVASTATIN
     Indication: HYPERCHOLESTEROLAEMIA
     Dosage: UNK
     Route: 065
     Dates: start: 20100101
  7. EUTHYROX [Concomitant]
     Active Substance: LEVOTHYROXINE SODIUM
     Indication: HYPOTHYROIDISM
     Dosage: UNK
     Route: 065
     Dates: start: 20090101
  8. SOTALOL. [Concomitant]
     Active Substance: SOTALOL
     Indication: ARRHYTHMIA
     Dosage: UNK
     Route: 065
     Dates: start: 20130101
  9. FLUANXOL                           /00109702/ [Concomitant]
     Active Substance: FLUPENTIXOL
     Indication: DEPRESSION
     Dosage: UNK
     Route: 065
     Dates: start: 20090101
  10. HERCEPTIN [Concomitant]
     Active Substance: TRASTUZUMAB
     Indication: BREAST CANCER
     Dosage: UNK; RECENT DOSE: 456 MG
     Route: 065
     Dates: start: 20150518

REACTIONS (4)
  - Dehydration [Unknown]
  - Diarrhoea [Unknown]
  - Asthenia [Unknown]
  - Hypokalaemia [Recovered/Resolved]

NARRATIVE: CASE EVENT DATE: 20150729
